FAERS Safety Report 17525166 (Version 1)
Quarter: 2020Q1

REPORT INFORMATION
  Report Type: Report from Study
  Country: US (occurrence: US)
  Receive Date: 20200310
  Receipt Date: 20200310
  Transmission Date: 20200409
  Serious: Yes (Hospitalization)
  Sender: FDA-Public Use
  Company Number: US-BAYER-2020-016354

PATIENT
  Age: 52 Year
  Sex: Female

DRUGS (2)
  1. STIVARGA [Suspect]
     Active Substance: REGORAFENIB
     Indication: COLORECTAL CANCER
     Dosage: 120 MG, QD(3 WEEKS ON AND 1 WEEK OFF )
     Route: 048
     Dates: start: 20200131, end: 20200204
  2. STIVARGA [Suspect]
     Active Substance: REGORAFENIB
     Indication: COLORECTAL CANCER
     Dosage: 80 MG DAILY ORALLY CYCLE IS 21 DAYS ON, 7 DAYS OFF
     Route: 048
     Dates: start: 20200123, end: 202001

REACTIONS (15)
  - Blister [Recovering/Resolving]
  - Pain in extremity [Recovering/Resolving]
  - Fatigue [Not Recovered/Not Resolved]
  - Pain in extremity [Not Recovered/Not Resolved]
  - Off label use [None]
  - Pain in extremity [Not Recovered/Not Resolved]
  - Rash [None]
  - Blood pressure increased [Not Recovered/Not Resolved]
  - Gait disturbance [None]
  - Chills [Not Recovered/Not Resolved]
  - Urticaria [Recovering/Resolving]
  - Skin exfoliation [Not Recovered/Not Resolved]
  - Pyrexia [Recovering/Resolving]
  - Plantar erythema [Not Recovered/Not Resolved]
  - Burning sensation [None]

NARRATIVE: CASE EVENT DATE: 20200131
